FAERS Safety Report 4758875-2 (Version None)
Quarter: 2005Q3

REPORT INFORMATION
  Report Type: 
  Country: None (occurrence: None)
  Receive Date: 20050831
  Receipt Date: 20050817
  Transmission Date: 20060218
  Serious: Yes (Death, Other)
  Sender: FDA-Public Use
  Company Number: 05-08-1449

PATIENT
  Age: 74 Year
  Sex: Female

DRUGS (2)
  1. CLOZAPINE [Suspect]
     Indication: PARKINSON'S DISEASE
     Dosage: 25-125MG QD ORAL
     Route: 048
     Dates: start: 20030301, end: 20050601
  2. CLOZAPINE [Suspect]
     Indication: SCHIZOPHRENIA
     Dosage: 25-125MG QD ORAL
     Route: 048
     Dates: start: 20030301, end: 20050601

REACTIONS (1)
  - CARDIO-RESPIRATORY ARREST [None]
